FAERS Safety Report 7303831-3 (Version None)
Quarter: 2011Q1

REPORT INFORMATION
  Report Type: 
  Country: None (occurrence: None)
  Receive Date: 20110221
  Receipt Date: 20110214
  Transmission Date: 20110831
  Serious: Yes (Hospitalization, Congenital Anomaly)
  Sender: FDA-Public Use
  Company Number: A0878190A

PATIENT
  Sex: Female
  Weight: 3.7 kg

DRUGS (3)
  1. IRON [Concomitant]
  2. PRENATAL VITAMINS [Concomitant]
  3. PAXIL [Suspect]
     Route: 064

REACTIONS (5)
  - CONGENITAL CORONARY ARTERY MALFORMATION [None]
  - FALLOT'S TETRALOGY [None]
  - DRUG EXPOSURE DURING PREGNANCY [None]
  - PULMONARY VALVE INCOMPETENCE [None]
  - LEFT VENTRICLE OUTFLOW TRACT OBSTRUCTION [None]
